FAERS Safety Report 4498034-4 (Version None)
Quarter: 2004Q4

REPORT INFORMATION
  Report Type: 
  Country: None (occurrence: None)
  Receive Date: 20041109
  Receipt Date: 20041109
  Transmission Date: 20050328
  Serious: Yes (Other)
  Sender: FDA-Public Use
  Company Number: None

PATIENT
  Age: 51 Year
  Sex: Female
  Weight: 158.759 kg

DRUGS (3)
  1. TEQUIN [Suspect]
     Indication: UPPER RESPIRATORY TRACT INFECTION
     Dates: start: 20011218, end: 20011227
  2. TEQUIN [Suspect]
     Indication: UPPER RESPIRATORY TRACT INFECTION
     Dates: start: 20041104, end: 20041106
  3. LEVAQUIN [Concomitant]

REACTIONS (21)
  - ASTHENIA [None]
  - BACK PAIN [None]
  - DERMATITIS EXFOLIATIVE [None]
  - DRY SKIN [None]
  - DYSGEUSIA [None]
  - FACIAL PALSY [None]
  - GINGIVITIS [None]
  - HYPOAESTHESIA [None]
  - HYPOAESTHESIA ORAL [None]
  - INFLAMMATION [None]
  - LIP DISORDER [None]
  - LYMPHADENOPATHY [None]
  - MOUTH ULCERATION [None]
  - MUSCULAR WEAKNESS [None]
  - NAUSEA [None]
  - PAROSMIA [None]
  - PRURITUS [None]
  - SWELLING [None]
  - THIRST [None]
  - VERTIGO [None]
  - VOMITING [None]
